FAERS Safety Report 4409740-1 (Version None)
Quarter: 2004Q3

REPORT INFORMATION
  Report Type: 
  Country: None (occurrence: None)
  Receive Date: 20040728
  Receipt Date: 20040723
  Transmission Date: 20050211
  Serious: Yes (Hospitalization)
  Sender: FDA-Public Use
  Company Number: 200417270GDDC

PATIENT
  Age: 6 Year
  Sex: Male

DRUGS (2)
  1. DESMOTABS [Suspect]
     Indication: NOCTURIA
     Route: 048
     Dates: start: 20040709, end: 20040912
  2. LORAZEPAM [Concomitant]
     Dosage: DOSE: UNK

REACTIONS (8)
  - BLOOD CHLORIDE DECREASED [None]
  - BLOOD MAGNESIUM DECREASED [None]
  - BLOOD POTASSIUM DECREASED [None]
  - CONVULSION [None]
  - HYPONATRAEMIA [None]
  - PYREXIA [None]
  - TREATMENT NONCOMPLIANCE [None]
  - VOMITING [None]
